FAERS Safety Report 4382130-6 (Version None)
Quarter: 2004Q2

REPORT INFORMATION
  Report Type: 
  Country: None (occurrence: None)
  Receive Date: 20040621
  Receipt Date: 20030804
  Transmission Date: 20050107
  Serious: Yes (Other)
  Sender: FDA-Public Use
  Company Number: NUBN20030018

PATIENT
  Age: 47 Year
  Sex: Female

DRUGS (6)
  1. NUBAIN [Suspect]
     Indication: MIGRAINE
     Dosage: 20 MG/ML ENDO
     Dates: start: 19960101, end: 19971201
  2. NALBUPHINE 20 MG [Suspect]
     Indication: MIGRAINE
     Dosage: 20 MG
     Dates: start: 19960901, end: 19970301
  3. TALWIN [Suspect]
     Indication: MIGRAINE
     Dosage: 30 MG
     Dates: start: 19960910
  4. TRANXENE [Concomitant]
  5. LORAZEPAM [Concomitant]
  6. STADOL [Concomitant]

REACTIONS (2)
  - DRUG ABUSER [None]
  - DRUG DEPENDENCE [None]
